FAERS Safety Report 7673441 (Version 4)
Quarter: 2013Q3

REPORT INFORMATION
  Report Type: Spontaneous
  Country: FR (occurrence: None)
  Receive Date: 20101026
  Receipt Date: 20130709
  Transmission Date: 20140515
  Serious: Yes (Hospitalization)
  Sender: FDA-Public Use
  Company Number: 2010-3556

PATIENT
  Age: 12 Year
  Sex: Male

DRUGS (10)
  1. MECASERMIN [Suspect]
     Indication: INSULIN-LIKE GROWTH FACTOR DECREASED
     Dosage: 0.16 MG/KG (0.08 MG/KG,2 IN 1 D)?
     Dates: start: 20081223
  2. CREON [Concomitant]
  3. UVESTEROL (UVESTEROL) [Concomitant]
  4. DELURSAN (URSODEOXYCHOLIC ACID) TABLET [Concomitant]
  5. A [Concomitant]
  6. BECONASE AQ [Concomitant]
  7. OMEPRAZOLE [Concomitant]
  8. DEMORELLE (ALL OTHER THERAPEUTIC PRODUCTS) [Concomitant]
  9. RISPERDAL [Concomitant]
  10. PULMOZYME [Concomitant]

REACTIONS (2)
  - Constipation [None]
  - Abdominal pain [None]
